FAERS Safety Report 6646947-7 (Version None)
Quarter: 2010Q1

REPORT INFORMATION
  Report Type: 
  Country: None (occurrence: None)
  Receive Date: 20100323
  Receipt Date: 20100315
  Transmission Date: 20100710
  Serious: Yes (Hospitalization)
  Sender: FDA-Public Use
  Company Number: FR-JNJFOC-20100304507

PATIENT
  Age: 74 Year
  Sex: Female

DRUGS (18)
  1. DURAGESIC-100 [Suspect]
     Indication: PAIN
     Route: 062
     Dates: start: 20090416, end: 20090420
  2. MORPHINE SULFATE [Suspect]
     Indication: DRUG USE FOR UNKNOWN INDICATION
     Route: 048
  3. HYZAAR [Concomitant]
     Route: 048
  4. LASIX [Concomitant]
     Route: 048
  5. BISOPROLOL [Concomitant]
     Route: 048
  6. DIFFU-K [Concomitant]
  7. EPINITRIL [Concomitant]
     Route: 062
  8. SEROPLEX [Concomitant]
     Route: 048
  9. BROMAZEPAM [Concomitant]
  10. ATARAX [Concomitant]
     Route: 048
  11. GAVISCON NOS [Concomitant]
  12. SPIRIVA [Concomitant]
     Route: 055
  13. SYMBICORT [Concomitant]
     Route: 055
  14. PIASCLEDINE [Concomitant]
     Route: 048
  15. VOLTAREN [Concomitant]
  16. DOLIPRANE [Concomitant]
  17. LAMALINE [Concomitant]
  18. FLUINDIONE [Concomitant]

REACTIONS (6)
  - ARTHRALGIA [None]
  - CONFUSIONAL STATE [None]
  - DYSPNOEA [None]
  - GENERAL PHYSICAL HEALTH DETERIORATION [None]
  - RADICULAR PAIN [None]
  - RENAL FAILURE [None]
